FAERS Safety Report 7491684-2 (Version None)
Quarter: 2011Q2

REPORT INFORMATION
  Report Type: 
  Country: None (occurrence: None)
  Receive Date: 20110519
  Receipt Date: 20110419
  Transmission Date: 20111010
  Serious: No
  Sender: FDA-Public Use
  Company Number: US-BAYER-2011-034853

PATIENT
  Sex: Male
  Weight: 159 kg

DRUGS (2)
  1. ALEVE (CAPLET) [Suspect]
     Indication: ARTHRITIS
     Dosage: 2 DF, UNK
     Route: 048
     Dates: start: 20110417
  2. AMLODIPINE W/BENAZEPRIL [Concomitant]

REACTIONS (1)
  - ARTHRITIS [None]
